FAERS Safety Report 5339429-6 (Version None)
Quarter: 2007Q2

REPORT INFORMATION
  Report Type: 
  Country: None (occurrence: None)
  Receive Date: 20070404
  Receipt Date: 20060730
  Transmission Date: 20071010
  Serious: Yes (Other)
  Sender: FDA-Public Use
  Company Number: 2006093439

PATIENT
  Age: 16 Year
  Sex: Female

DRUGS (5)
  1. GEODON [Suspect]
     Indication: BIPOLAR DISORDER
     Dosage: 120 MG (2 IN 1 D)
     Dates: start: 20060701
  2. DEPAKOTE [Concomitant]
  3. CONCERTA [Concomitant]
  4. PAXIL [Concomitant]
  5. ALL OTHER THERAPEUTIC PRODUCTS (ALL OTHER THERAPEUTIC PRODUCTS) [Concomitant]

REACTIONS (4)
  - HYPERSENSITIVITY [None]
  - LIP SWELLING [None]
  - OEDEMA PERIPHERAL [None]
  - RASH [None]
